FAERS Safety Report 9308324 (Version 1)
Quarter: 2013Q2

REPORT INFORMATION
  Report Type: Spontaneous
  Country: US (occurrence: US)
  Receive Date: 20130524
  Receipt Date: 20130524
  Transmission Date: 20140414
  Serious: Yes (Death)
  Sender: FDA-Public Use
  Company Number: US-GLAXOSMITHKLINE-A1024301A

PATIENT
  Age: 56 Year
  Sex: Male

DRUGS (4)
  1. VOTRIENT [Suspect]
     Indication: COLON CANCER
     Dosage: 400MG PER DAY
     Route: 048
     Dates: start: 20130220, end: 20130503
  2. VITAMIN D [Concomitant]
  3. LEXAPRO [Concomitant]
  4. MULTIVITAMIN [Concomitant]

REACTIONS (1)
  - Death [Fatal]
